FAERS Safety Report 25920942 (Version 1)
Quarter: 2025Q4

REPORT INFORMATION
  Report Type: Spontaneous
  Country: US (occurrence: US)
  Receive Date: 20251014
  Receipt Date: 20251014
  Transmission Date: 20260118
  Serious: No
  Sender: PHARMING GROUP
  Company Number: US-PHARMING-PHAUS2025001412

PATIENT

DRUGS (1)
  1. RUCONEST [Suspect]
     Active Substance: CONESTAT ALFA
     Indication: Hereditary angioedema
     Dosage: 2100 IU, AS NEEDED
     Route: 042

REACTIONS (2)
  - Intercepted product preparation error [Unknown]
  - Underdose [Unknown]

NARRATIVE: CASE EVENT DATE: 20251005
